FAERS Safety Report 9100354 (Version 1)
Quarter: 2013Q1

REPORT INFORMATION
  Report Type: Spontaneous
  Country: US (occurrence: US)
  Receive Date: 20130214
  Receipt Date: 20130214
  Transmission Date: 20140127
  Serious: Yes (Other)
  Sender: FDA-Public Use
  Company Number: US-SHIRE-ALL1-2013-00814

PATIENT
  Age: 21 Year
  Sex: Male
  Weight: 77.1 kg

DRUGS (1)
  1. VYVANSE [Suspect]
     Indication: ATTENTION DEFICIT/HYPERACTIVITY DISORDER
     Dosage: UNK, 1X/DAY:QD
     Route: 048
     Dates: start: 201101, end: 2011

REACTIONS (3)
  - Sexual abuse [Recovered/Resolved]
  - Hypersexuality [Recovered/Resolved]
  - Imprisonment [Not Recovered/Not Resolved]
